FAERS Safety Report 12594289 (Version 4)
Quarter: 2016Q3

REPORT INFORMATION
  Report Type: Report from Study
  Country: GB (occurrence: GB)
  Receive Date: 20160726
  Receipt Date: 20160914
  Transmission Date: 20161109
  Serious: Yes (Hospitalization, Other)
  Sender: FDA-Public Use
  Company Number: GB-ALEXION PHARMACEUTICALS INC.-A201605286

PATIENT
  Age: 1 Month
  Sex: Female
  Weight: 3 kg

DRUGS (5)
  1. ENB-0040 [Suspect]
     Active Substance: ASFOTASE ALFA
     Indication: HYPOPHOSPHATASIA
     Dosage: 2 MG/KG,TIW
     Route: 058
     Dates: start: 20160617
  2. FUROSEMIDE. [Concomitant]
     Active Substance: FUROSEMIDE
     Indication: SWELLING
     Route: 065
  3. ENB-0040 [Suspect]
     Active Substance: ASFOTASE ALFA
     Dosage: 3 MG/KG, UNK
     Route: 058
     Dates: start: 201607
  4. ENB-0040 [Suspect]
     Active Substance: ASFOTASE ALFA
     Dosage: 6 MG/KG, TIW
     Route: 058
     Dates: start: 20160727
  5. FUROSEMIDE. [Concomitant]
     Active Substance: FUROSEMIDE
     Indication: FLUID OVERLOAD

REACTIONS (9)
  - Device related infection [Recovered/Resolved]
  - Bronchomalacia [Recovering/Resolving]
  - Hypercapnia [Not Recovered/Not Resolved]
  - Bradycardia [Not Recovered/Not Resolved]
  - Pneumothorax [Not Recovered/Not Resolved]
  - Respiratory acidosis [Recovered/Resolved]
  - Polyuria [Recovered/Resolved]
  - Apnoea [Unknown]
  - Lung disorder [Not Recovered/Not Resolved]

NARRATIVE: CASE EVENT DATE: 20160721
